FAERS Safety Report 10900419 (Version 2)
Quarter: 2015Q1

REPORT INFORMATION
  Report Type: Report from Study
  Country: DE (occurrence: DE)
  Receive Date: 20150310
  Receipt Date: 20150325
  Transmission Date: 20150721
  Serious: Yes (Death)
  Sender: FDA-Public Use
  Company Number: DE-BEH-2015049330

PATIENT
  Age: 78 Year
  Sex: Female
  Weight: 48 kg

DRUGS (19)
  1. CLOPIDOGREL 75 [Concomitant]
  2. ALL OTHER THERAPEUTIC PRODUCTS [Concomitant]
     Active Substance: UNSPECIFIED INGREDIENT
  3. LANTUS [Concomitant]
     Active Substance: INSULIN GLARGINE
  4. PREDNISOLUT [Concomitant]
     Active Substance: PREDNISOLONE
     Route: 042
     Dates: start: 20141017, end: 20141017
  5. RAMIPRIL. [Concomitant]
     Active Substance: RAMIPRIL
  6. METHIZOL SD [Concomitant]
  7. PREDNISOLUT [Concomitant]
     Active Substance: PREDNISOLONE
     Route: 042
     Dates: start: 20141216, end: 20141216
  8. PRIVIGEN [Suspect]
     Active Substance: HUMAN IMMUNOGLOBULIN G
     Dosage: INFUSION RATE MIN. 08 ML/MIN, MAX. 6 ML/MIN
     Route: 042
     Dates: start: 20141216, end: 20141216
  9. PRIVIGEN [Suspect]
     Active Substance: HUMAN IMMUNOGLOBULIN G
     Indication: SECONDARY IMMUNODEFICIENCY
     Dosage: INFUSION RATE MIN. 08 ML/MIN, MAX. 6 ML/MIN
     Route: 042
     Dates: start: 20150113, end: 20150113
  10. ALLOPURINOL. [Concomitant]
     Active Substance: ALLOPURINOL
  11. TORASEMIDE [Concomitant]
     Active Substance: TORSEMIDE
  12. PRIVIGEN [Suspect]
     Active Substance: HUMAN IMMUNOGLOBULIN G
     Indication: CHRONIC LYMPHOCYTIC LEUKAEMIA
     Dosage: INFUSION RATE MIN. 08 ML/MIN, MAX. 6 ML/MIN
     Route: 042
     Dates: start: 20141118, end: 20141118
  13. ACTRAPID [Concomitant]
     Active Substance: INSULIN HUMAN
  14. PREDNISOLUT [Concomitant]
     Active Substance: PREDNISOLONE
     Route: 042
     Dates: start: 20141118, end: 20141118
  15. PRIVIGEN [Suspect]
     Active Substance: HUMAN IMMUNOGLOBULIN G
     Indication: INFECTION
     Dosage: INFUSION RATE MIN. 08 ML/MIN, MAX. 6 ML/MIN
     Route: 042
     Dates: start: 20141017, end: 20141017
  16. METOPROLOL SUCC. [Concomitant]
  17. SIMVASTATIN. [Concomitant]
     Active Substance: SIMVASTATIN
  18. BENDAMUSTINE [Concomitant]
     Active Substance: BENDAMUSTINE
     Dates: start: 20141021
  19. PREDNISOLUT [Concomitant]
     Active Substance: PREDNISOLONE
     Route: 042
     Dates: start: 20150113, end: 20150113

REACTIONS (4)
  - Cough [Recovered/Resolved]
  - Rhinitis [Recovered/Resolved]
  - Malignant melanoma [Fatal]
  - Sputum discoloured [Recovered/Resolved]

NARRATIVE: CASE EVENT DATE: 201412
